FAERS Safety Report 15937123 (Version 6)
Quarter: 2019Q3

REPORT INFORMATION
  Report Type: Spontaneous
  Country: US (occurrence: US)
  Receive Date: 20190208
  Receipt Date: 20190925
  Transmission Date: 20191004
  Serious: Yes (Death, Hospitalization, Other)
  Sender: FDA-Public Use
  Company Number: US-ASTRAZENECA-2018SF34857

PATIENT
  Age: 565 Month
  Sex: Male
  Weight: 95.7 kg

DRUGS (26)
  1. NEXIUM [Suspect]
     Active Substance: ESOMEPRAZOLE MAGNESIUM
     Route: 048
     Dates: start: 20050204, end: 20120105
  2. VENTOLIN [Concomitant]
     Active Substance: ALBUTEROL SULFATE
  3. ULTRAM [Concomitant]
     Active Substance: TRAMADOL HYDROCHLORIDE
  4. PRILOSEC [Suspect]
     Active Substance: OMEPRAZOLE MAGNESIUM
     Indication: GASTROOESOPHAGEAL REFLUX DISEASE
     Route: 048
  5. PRAVACHOL [Concomitant]
     Active Substance: PRAVASTATIN SODIUM
  6. NEXIUM 24HR [Suspect]
     Active Substance: ESOMEPRAZOLE MAGNESIUM
     Indication: GASTROOESOPHAGEAL REFLUX DISEASE
     Route: 048
     Dates: start: 201404, end: 201601
  7. PRILOSEC OTC [Suspect]
     Active Substance: OMEPRAZOLE MAGNESIUM
     Indication: GASTROOESOPHAGEAL REFLUX DISEASE
     Route: 048
     Dates: start: 200307, end: 201101
  8. GABAPENTIN. [Concomitant]
     Active Substance: GABAPENTIN
  9. PRILOSEC [Suspect]
     Active Substance: OMEPRAZOLE MAGNESIUM
     Indication: GASTROOESOPHAGEAL REFLUX DISEASE
     Dosage: GENERIC-40MGDAILY
     Route: 065
     Dates: start: 201410, end: 201601
  10. PREVACID [Suspect]
     Active Substance: LANSOPRAZOLE
     Route: 065
     Dates: start: 20050204, end: 20120105
  11. ZESTRIL [Concomitant]
     Active Substance: LISINOPRIL
  12. HUMULIN NOS [Concomitant]
     Active Substance: INSULIN HUMAN
  13. ZEGERID OTC [Suspect]
     Active Substance: OMEPRAZOLE\SODIUM BICARBONATE
     Indication: GASTROOESOPHAGEAL REFLUX DISEASE
     Route: 065
     Dates: start: 200912, end: 201001
  14. DESYREL [Concomitant]
     Active Substance: TRAZODONE HYDROCHLORIDE
  15. GUANFACINE. [Concomitant]
     Active Substance: GUANFACINE
  16. CLONIDINE. [Concomitant]
     Active Substance: CLONIDINE
  17. NORCO [Concomitant]
     Active Substance: ACETAMINOPHEN\HYDROCODONE BITARTRATE
  18. PROTONIX [Suspect]
     Active Substance: PANTOPRAZOLE SODIUM
     Route: 065
     Dates: start: 20050204, end: 20120105
  19. PREVACID 24 HR [Suspect]
     Active Substance: LANSOPRAZOLE
     Route: 065
     Dates: start: 20120105, end: 20130101
  20. NORVASC [Concomitant]
     Active Substance: AMLODIPINE BESYLATE
  21. ENALAPRIL [Concomitant]
     Active Substance: ENALAPRIL
  22. COREG [Concomitant]
     Active Substance: CARVEDILOL
  23. CELEXA [Concomitant]
     Active Substance: CITALOPRAM HYDROBROMIDE
  24. SEROQUAL [Concomitant]
  25. METOPROLOL TARTRATE. [Concomitant]
     Active Substance: METOPROLOL TARTRATE
  26. CEPHULAC [Concomitant]
     Active Substance: LACTULOSE

REACTIONS (6)
  - Renal injury [Unknown]
  - Renal failure [Unknown]
  - End stage renal disease [Unknown]
  - Nephrogenic anaemia [Unknown]
  - Hyperparathyroidism secondary [Unknown]
  - Chronic kidney disease [Recovered/Resolved]

NARRATIVE: CASE EVENT DATE: 201206
